FAERS Safety Report 9699302 (Version 1)
Quarter: 2013Q4

REPORT INFORMATION
  Report Type: Spontaneous
  Country: US (occurrence: US)
  Receive Date: 20131120
  Receipt Date: 20131120
  Transmission Date: 20140711
  Serious: No
  Sender: FDA-Public Use
  Company Number: US-GILEAD-2008-0015582

PATIENT
  Sex: Female
  Weight: 88.45 kg

DRUGS (11)
  1. LETAIRIS [Suspect]
     Indication: PULMONARY ARTERIAL HYPERTENSION
     Route: 048
     Dates: start: 20080122
  2. BUMETANIDE [Concomitant]
     Route: 048
  3. HYZAAR [Concomitant]
     Route: 048
  4. COREG [Concomitant]
     Route: 048
  5. HUMALOG [Concomitant]
     Dosage: UD
     Route: 058
  6. LANTUS [Concomitant]
     Route: 058
  7. METFORMIN [Concomitant]
     Route: 048
  8. ACTOS [Concomitant]
     Route: 048
  9. LIPITOR [Concomitant]
     Route: 048
  10. PROZAC [Concomitant]
     Route: 048
  11. POTASSIUM CHLORIDE [Concomitant]
     Route: 048

REACTIONS (1)
  - Nausea [Unknown]
